FAERS Safety Report 15065622 (Version 1)
Quarter: 2018Q2

REPORT INFORMATION
  Report Type: Spontaneous
  Country: RO (occurrence: RO)
  Receive Date: 20180626
  Receipt Date: 20180626
  Transmission Date: 20180711
  Serious: Yes (Hospitalization)
  Sender: FDA-Public Use
  Company Number: RO-AUROBINDO-AUR-APL-2018-027174

PATIENT
  Age: 26 Year
  Sex: Female

DRUGS (1)
  1. METOPROLOL. [Suspect]
     Active Substance: METOPROLOL
     Indication: INTENTIONAL OVERDOSE
     Dosage: 500 MILLIGRAM
     Route: 065

REACTIONS (4)
  - Visual impairment [Unknown]
  - Intentional overdose [Unknown]
  - Agitation [Unknown]
  - Parosmia [Unknown]
